FAERS Safety Report 10957342 (Version 1)
Quarter: 2015Q1

REPORT INFORMATION
  Report Type: Spontaneous
  Country: US (occurrence: US)
  Receive Date: 20150326
  Receipt Date: 20150326
  Transmission Date: 20150721
  Serious: No
  Sender: FDA-Public Use
  Company Number: US-SA-2015SA000883

PATIENT
  Age: 50 Year
  Sex: Female

DRUGS (1)
  1. AUBAGIO [Suspect]
     Active Substance: TERIFLUNOMIDE
     Indication: MULTIPLE SCLEROSIS
     Route: 048
     Dates: start: 20141004

REACTIONS (4)
  - Upper respiratory tract infection [Unknown]
  - Pyrexia [Unknown]
  - Hypoaesthesia [Unknown]
  - Condition aggravated [Unknown]

NARRATIVE: CASE EVENT DATE: 20141230
